FAERS Safety Report 5479214-8 (Version None)
Quarter: 2007Q4

REPORT INFORMATION
  Report Type: 
  Country: None (occurrence: None)
  Receive Date: 20071008
  Receipt Date: 20070928
  Transmission Date: 20080405
  Serious: Yes (Hospitalization, Other)
  Sender: FDA-Public Use
  Company Number: PHBS2007CH16053

PATIENT
  Age: 74 Year
  Sex: Female

DRUGS (3)
  1. METFORMIN HCL [Suspect]
     Indication: DIABETES MELLITUS
     Dosage: UNK, UNK
     Dates: end: 20070803
  2. SORTIS [Suspect]
     Indication: HYPERLIPIDAEMIA
     Dosage: 1 DF, D
     Dates: end: 20070803
  3. STARLIX [Suspect]
     Indication: DIABETES MELLITUS
     Dosage: 1 DF, D
     Dates: end: 20070803

REACTIONS (9)
  - ALANINE AMINOTRANSFERASE INCREASED [None]
  - ASPARTATE AMINOTRANSFERASE INCREASED [None]
  - BLOOD ALKALINE PHOSPHATASE INCREASED [None]
  - BLOOD BILIRUBIN INCREASED [None]
  - EOSINOPHILIA [None]
  - GAMMA-GLUTAMYLTRANSFERASE INCREASED [None]
  - HEPATIC STEATOSIS [None]
  - HYPERSENSITIVITY [None]
  - JAUNDICE [None]
